FAERS Safety Report 7731109-2 (Version None)
Quarter: 2011Q3

REPORT INFORMATION
  Report Type: 
  Country: None (occurrence: None)
  Receive Date: 20110906
  Receipt Date: 20110906
  Transmission Date: 20111222
  Serious: No
  Sender: FDA-Public Use
  Company Number: None

PATIENT
  Age: 61 Year
  Sex: Female
  Weight: 71.214 kg

DRUGS (1)
  1. RECLAST [Suspect]
     Indication: OSTEOPOROSIS
     Dates: start: 20110901, end: 20110901

REACTIONS (7)
  - PYREXIA [None]
  - ARTHRALGIA [None]
  - NAUSEA [None]
  - DECREASED APPETITE [None]
  - CHILLS [None]
  - LETHARGY [None]
  - MYALGIA [None]
